FAERS Safety Report 4595961-4 (Version None)
Quarter: 2005Q1

REPORT INFORMATION
  Report Type: 
  Country: None (occurrence: None)
  Receive Date: 20050302
  Receipt Date: 20050218
  Transmission Date: 20050727
  Serious: Yes (Life-Threatening)
  Sender: FDA-Public Use
  Company Number: CN-JNJFOC-20050204685

PATIENT
  Age: 22 Year
  Sex: Male
  Weight: 59 kg

DRUGS (10)
  1. RISPERDAL [Suspect]
  2. RISPERDAL [Suspect]
     Indication: SCHIZOPHRENIA
  3. CLONAZEPAM [Concomitant]
  4. TIOPRONIN [Concomitant]
     Route: 049
  5. ANTAN [Concomitant]
     Route: 049
  6. VITAMIN C [Concomitant]
  7. XIAO CHAI HU [Concomitant]
  8. HALOPERIDOL [Concomitant]
  9. CEFRADINE [Concomitant]
     Route: 049
  10. TROPINE [Concomitant]
     Route: 030

REACTIONS (6)
  - CHOLELITHIASIS [None]
  - HEPATIC LESION [None]
  - LIVER FUNCTION TEST ABNORMAL [None]
  - PYREXIA [None]
  - RED BLOOD CELLS URINE POSITIVE [None]
  - WHITE BLOOD CELLS URINE POSITIVE [None]
